FAERS Safety Report 24061447 (Version 1)
Quarter: 2024Q3

REPORT INFORMATION
  Report Type: Report from Study
  Country: MX (occurrence: MX)
  Receive Date: 20240708
  Receipt Date: 20240708
  Transmission Date: 20241016
  Serious: No
  Sender: ROCHE
  Company Number: MX-ROCHE-10000018252

PATIENT
  Age: 49 Year
  Sex: Female
  Weight: 60 kg

DRUGS (3)
  1. OCREVUS [Suspect]
     Active Substance: OCRELIZUMAB
     Indication: Multiple sclerosis
     Route: 042
     Dates: start: 202305
  2. DOLO NEUROBION [DICLOFENAC SODIUM;PYRIDOXINE HYDROCHLORIDE;THIAMINE MO [Concomitant]
     Indication: Pain
     Dosage: DOSE AND FREQUENCY WERE NOT REPORTED
  3. CELEBREX [Concomitant]
     Active Substance: CELECOXIB
     Indication: Pain
     Dosage: DOSE AND FREQUENCY WERE NOT REPORTED

REACTIONS (3)
  - Neck pain [Not Recovered/Not Resolved]
  - Asthenia [Unknown]
  - Demyelination [Unknown]

NARRATIVE: CASE EVENT DATE: 20240620
